FAERS Safety Report 7030161-X (Version None)
Quarter: 2010Q4

REPORT INFORMATION
  Report Type: 
  Country: None (occurrence: None)
  Receive Date: 20101006
  Receipt Date: 20100923
  Transmission Date: 20110411
  Serious: No
  Sender: FDA-Public Use
  Company Number: US-B.I. PHARMACEUTICALS,INC./RIDGEFIELD-2010-BP-10845BP

PATIENT
  Sex: Male

DRUGS (3)
  1. ZANTAC 150 [Suspect]
     Indication: DYSPEPSIA
     Dosage: 300 MG
     Route: 048
     Dates: start: 20100922, end: 20100922
  2. METRONIDAZOLE [Concomitant]
     Indication: DIVERTICULITIS
     Dates: start: 20100901
  3. FLU SHOT [Concomitant]
     Dates: start: 20100922

REACTIONS (2)
  - COUGH [None]
  - VOMITING [None]
